FAERS Safety Report 20610653 (Version 1)
Quarter: 2022Q1

REPORT INFORMATION
  Report Type: Spontaneous
  Country: US (occurrence: US)
  Receive Date: 20220318
  Receipt Date: 20220318
  Transmission Date: 20220423
  Serious: Yes (Death, Other)
  Sender: FDA-Public Use
  Company Number: US-ALVOGEN-2022-ALVOGEN-118853

PATIENT
  Age: 47 Year
  Sex: Female

DRUGS (3)
  1. GABAPENTIN [Suspect]
     Active Substance: GABAPENTIN
     Indication: Drug abuse
  2. FENTANYL [Suspect]
     Active Substance: FENTANYL
     Indication: Drug abuse
     Dosage: MCG/HR
  3. DIPHENHYDRAMINE [Suspect]
     Active Substance: DIPHENHYDRAMINE
     Indication: Drug abuse

REACTIONS (1)
  - Drug abuse [Fatal]
